FAERS Safety Report 25179382 (Version 1)
Quarter: 2025Q2

REPORT INFORMATION
  Report Type: Spontaneous
  Country: ZA (occurrence: ZA)
  Receive Date: 20250409
  Receipt Date: 20250409
  Transmission Date: 20250716
  Serious: Yes (Other)
  Sender: PFIZER
  Company Number: ZA-PFIZER INC-PV202500041754

PATIENT
  Age: 47 Year
  Sex: Male
  Weight: 112 kg

DRUGS (2)
  1. SULFASALAZINE [Suspect]
     Active Substance: SULFASALAZINE
     Dosage: 1 G, 2X/DAY
     Route: 048
     Dates: start: 201001, end: 201012
  2. KOCITAF [Concomitant]
     Dates: start: 1996

REACTIONS (3)
  - Optic neuritis [Unknown]
  - Drug intolerance [Unknown]
  - Condition aggravated [Unknown]
